FAERS Safety Report 26099738 (Version 1)
Quarter: 2025Q4

REPORT INFORMATION
  Report Type: Spontaneous
  Country: EU (occurrence: EU)
  Receive Date: 20251128
  Receipt Date: 20251128
  Transmission Date: 20260118
  Serious: Yes (Other)
  Sender: ALKEM
  Company Number: EU-ALKEM LABORATORIES LIMITED-PT-ALKEM-2025-08947

PATIENT
  Age: 21 Year
  Sex: Male

DRUGS (3)
  1. OLANZAPINE [Suspect]
     Active Substance: OLANZAPINE
     Indication: Delusional disorder, persecutory type
     Dosage: UNK (TITRATED UP TO 10 MG/DAY)
     Route: 065
  2. CLOZAPINE [Suspect]
     Active Substance: CLOZAPINE
     Indication: Delusional disorder, persecutory type
     Dosage: UNK (SLOWLY TITRATED UP TO 200 MG/DAY)
     Route: 065
  3. RISPERIDONE [Suspect]
     Active Substance: RISPERIDONE
     Indication: Delusional disorder, persecutory type
     Dosage: UNK (SLOW TITRATION OF UP TO 3 MG/DAY)
     Route: 065

REACTIONS (7)
  - Dystonia [Recovering/Resolving]
  - Muscle rigidity [Recovering/Resolving]
  - Drug intolerance [Unknown]
  - Disease risk factor [Unknown]
  - Weight increased [Recovering/Resolving]
  - Extrapyramidal disorder [Recovering/Resolving]
  - Tremor [Recovering/Resolving]
